FAERS Safety Report 6490923-4 (Version None)
Quarter: 2009Q4

REPORT INFORMATION
  Report Type: 
  Country: None (occurrence: None)
  Receive Date: 20091211
  Receipt Date: 20091208
  Transmission Date: 20100525
  Serious: Yes (Death, Hospitalization)
  Sender: FDA-Public Use
  Company Number: IN-ELI_LILLY_AND_COMPANY-IN200912001676

PATIENT
  Age: 29 Year
  Sex: Female

DRUGS (4)
  1. XIGRIS [Suspect]
     Indication: PNEUMONIA
     Dosage: UNK, UNK
     Dates: start: 20091207
  2. VASOPRESSIN [Concomitant]
  3. NORADRENALINE [Concomitant]
  4. DOPAMINE HCL [Concomitant]

REACTIONS (1)
  - BLOOD PRESSURE DECREASED [None]
